FAERS Safety Report 4545226-1 (Version None)
Quarter: 2005Q1

REPORT INFORMATION
  Report Type: 
  Country: None (occurrence: None)
  Receive Date: 20050103
  Receipt Date: 20050103
  Transmission Date: 20050727
  Serious: Yes (Life-Threatening, Hospitalization)
  Sender: FDA-Public Use
  Company Number: None

PATIENT
  Age: 69 Year
  Sex: Female
  Weight: 105 kg

DRUGS (14)
  1. TENORMIN [Suspect]
     Indication: HYPERTENSION
     Dosage: 50MG PO QAM
     Route: 048
     Dates: start: 20041118
  2. TENORMIN [Suspect]
     Indication: HYPERTENSION
     Dosage: 50MG PO QAM
     Route: 048
     Dates: start: 20041119
  3. BEXTRA [Concomitant]
  4. KCL TAB [Concomitant]
  5. LASIX [Concomitant]
  6. CLARITIN [Concomitant]
  7. XANAX [Concomitant]
  8. HUMULIN [Concomitant]
  9. AVANDIA [Concomitant]
  10. GLUCOPHAGE [Concomitant]
  11. DIOVAN HCT [Concomitant]
  12. ... [Concomitant]
  13. CLONIDINE [Concomitant]
  14. ANTIVERT [Concomitant]

REACTIONS (3)
  - ATRIOVENTRICULAR BLOCK [None]
  - ATRIOVENTRICULAR BLOCK FIRST DEGREE [None]
  - BLOOD GLUCOSE DECREASED [None]
